FAERS Safety Report 5355409-9 (Version None)
Quarter: 2007Q2

REPORT INFORMATION
  Report Type: 
  Country: None (occurrence: None)
  Receive Date: 20070530
  Receipt Date: 20070111
  Transmission Date: 20071010
  Serious: Yes (Hospitalization, Other)
  Sender: FDA-Public Use
  Company Number: US200609003607

PATIENT
  Age: 38 Year
  Sex: Female
  Weight: 86.2 kg

DRUGS (7)
  1. ZYPREXA [Suspect]
     Dates: start: 20000101, end: 20020101
  2. SEROQUEL /UNK/ QUETIAPINE FUMARATE) [Concomitant]
  3. RISPERIDONE [Concomitant]
  4. GEODON [Concomitant]
  5. DEPAKOTE [Concomitant]
  6. LITHIUM CARBONATE [Concomitant]
  7. PAXIL [Concomitant]

REACTIONS (5)
  - BLOOD CHOLESTEROL INCREASED [None]
  - DIABETES MELLITUS [None]
  - DIABETIC COMA [None]
  - GLYCOSURIA [None]
  - PANCREATITIS [None]
